FAERS Safety Report 4555777-1 (Version None)
Quarter: 2005Q1

REPORT INFORMATION
  Report Type: 
  Country: None (occurrence: None)
  Receive Date: 20050112
  Receipt Date: 20040426
  Transmission Date: 20050727
  Serious: Yes (Hospitalization)
  Sender: FDA-Public Use
  Company Number: 206145

PATIENT
  Age: 67 Year
  Sex: Male

DRUGS (1)
  1. ACTIVASE [Suspect]
     Indication: CEREBROVASCULAR ACCIDENT
     Dosage: 0.9 MG/KG, SINGLE
     Dates: start: 20020608

REACTIONS (1)
  - HAEMORRHAGE INTRACRANIAL [None]
